FAERS Safety Report 6591525-1 (Version None)
Quarter: 2010Q1

REPORT INFORMATION
  Report Type: 
  Country: None (occurrence: None)
  Receive Date: 20100220
  Receipt Date: 20100209
  Transmission Date: 20100710
  Serious: Yes (Hospitalization)
  Sender: FDA-Public Use
  Company Number: US-ELI_LILLY_AND_COMPANY-US201002002439

PATIENT
  Sex: Female
  Weight: 60.317 kg

DRUGS (11)
  1. BYETTA [Suspect]
     Indication: LATENT AUTOIMMUNE DIABETES IN ADULTS
     Dosage: 5 UG, 2/D
     Route: 058
     Dates: start: 20050101, end: 20050101
  2. BYETTA [Suspect]
     Dosage: 10 UG, 2/D
     Route: 058
     Dates: start: 20050101, end: 20070101
  3. BYETTA [Suspect]
     Dosage: 10 UG, 2/D
     Route: 058
     Dates: start: 20070401, end: 20080101
  4. BYETTA [Suspect]
     Dosage: 5 UG, 2/D
     Route: 058
     Dates: start: 20080101
  5. GLUCOTROL [Concomitant]
     Indication: LATENT AUTOIMMUNE DIABETES IN ADULTS
  6. METFORMIN [Concomitant]
     Indication: LATENT AUTOIMMUNE DIABETES IN ADULTS
  7. HUMALOG [Concomitant]
     Dosage: UNK, 2/D
  8. LANTUS [Concomitant]
     Indication: LATENT AUTOIMMUNE DIABETES IN ADULTS
     Dosage: UNK, EACH EVENING
  9. LIPITOR [Concomitant]
     Dosage: 10 MG, DAILY (1/D)
     Route: 048
  10. THYROID TAB [Concomitant]
     Dosage: UNK, DAILY (1/D)
     Route: 048
  11. NEURONTIN [Concomitant]
     Dosage: 800 MG, DAILY (1/D)
     Route: 048

REACTIONS (11)
  - ANAEMIA [None]
  - BLOOD GLUCOSE DECREASED [None]
  - BLOOD GLUCOSE INCREASED [None]
  - DISORIENTATION [None]
  - HAEMORRHAGE [None]
  - INSOMNIA [None]
  - NIGHT SWEATS [None]
  - OFF LABEL USE [None]
  - PULMONARY HYPERTENSION [None]
  - UTERINE LEIOMYOMA [None]
  - WEIGHT DECREASED [None]
